FAERS Safety Report 10213720 (Version 3)
Quarter: 2014Q2

REPORT INFORMATION
  Report Type: Spontaneous
  Country: US (occurrence: None)
  Receive Date: 20140529
  Receipt Date: 20140612
  Transmission Date: 20141212
  Serious: Yes (Other)
  Sender: FDA-Public Use
  Company Number: 20140289

PATIENT
  Age: 80 Year
  Sex: Female

DRUGS (16)
  1. VENOFER [Suspect]
     Indication: IRON DEFICIENCY ANAEMIA
     Dosage: 300 MG OVER 65 MIN
     Route: 042
     Dates: start: 20140508, end: 20140508
  2. ARCAPTA NEOHALER CAPS (INDACATEROL MALEATE) [Concomitant]
  3. ASPIRIN (ACETYLSALICYLIC ACID) [Concomitant]
  4. CLARINEX [Concomitant]
  5. COLACE (DOCUSATE) [Concomitant]
  6. LIPITOR (ATORVASTATIN) [Concomitant]
  7. NASONEX [Concomitant]
  8. PRINIVIL (LISINOPRIL) [Concomitant]
  9. SPIRIVA [Concomitant]
  10. SYNTHROID (LEVOTHYROXINE) [Concomitant]
  11. VITAMIN B [Concomitant]
  12. VITAMIN D [Concomitant]
  13. HYDROCHLOROTHIAZIDE [Concomitant]
  14. MULTIVITAMIN [Concomitant]
  15. JANUVIA (SITAGLIPTIN) [Concomitant]
  16. GLYBURIDE [Concomitant]

REACTIONS (4)
  - Hypotension [None]
  - Oedema [None]
  - Swollen tongue [None]
  - Unresponsive to stimuli [None]
